FAERS Safety Report 22215812 (Version 1)
Quarter: 2023Q2

REPORT INFORMATION
  Report Type: Spontaneous
  Country: JP (occurrence: JP)
  Receive Date: 20230417
  Receipt Date: 20230417
  Transmission Date: 20230721
  Serious: Yes (Life-Threatening, Hospitalization, Other)
  Sender: FDA-Public Use
  Company Number: JP-002147023-NVSJ2023JP006302

PATIENT
  Age: 92 Year
  Sex: Female
  Weight: 50 kg

DRUGS (5)
  1. VALSARTAN [Suspect]
     Active Substance: VALSARTAN
     Indication: Hypertension
     Dosage: 80 MG, QD
     Route: 048
  2. VALSARTAN [Suspect]
     Active Substance: VALSARTAN
     Dosage: 80 MG, QD
     Route: 048
  3. RITONAVIR [Suspect]
     Active Substance: RITONAVIR
     Indication: COVID-19
     Dosage: 100 MG
     Route: 048
     Dates: start: 20230116, end: 20230117
  4. BENIDIPINE HYDROCHLORIDE [Suspect]
     Active Substance: BENIDIPINE HYDROCHLORIDE
     Indication: Hypertension
     Dosage: 8 MG, QD
     Route: 048
  5. TRICHLORMETHIAZIDE [Concomitant]
     Active Substance: TRICHLORMETHIAZIDE
     Indication: Hypertension
     Dosage: UNK
     Route: 048

REACTIONS (13)
  - Altered state of consciousness [Recovered/Resolved]
  - Blood pressure decreased [Recovered/Resolved]
  - Abdominal symptom [Unknown]
  - COVID-19 [Unknown]
  - Neuropathy peripheral [Unknown]
  - Meniere^s disease [Unknown]
  - White blood cell count decreased [Unknown]
  - Renal disorder [Unknown]
  - Gastrooesophageal reflux disease [Unknown]
  - Spinal stenosis [Unknown]
  - Arthropathy [Recovered/Resolved]
  - Dizziness [Unknown]
  - Constipation [Unknown]

NARRATIVE: CASE EVENT DATE: 20190911
